FAERS Safety Report 5057956-6 (Version None)
Quarter: 2006Q3

REPORT INFORMATION
  Report Type: 
  Country: None (occurrence: None)
  Receive Date: 20060721
  Receipt Date: 20060418
  Transmission Date: 20061208
  Serious: No
  Sender: FDA-Public Use
  Company Number: US-GLAXOSMITHKLINE-A0602167A

PATIENT
  Age: 60 Year
  Sex: Male

DRUGS (9)
  1. AVANDIA [Suspect]
     Dosage: 4MG TWICE PER DAY
     Route: 048
     Dates: start: 20060101
  2. AVANDAMET [Suspect]
     Dosage: 1TAB TWICE PER DAY
     Route: 048
  3. METFORMIN [Concomitant]
  4. GLIPIZIDE [Concomitant]
  5. LEVOXYL [Concomitant]
  6. ATENOLOL [Concomitant]
  7. TRICOR [Concomitant]
  8. ALPRAZOLAM [Concomitant]
  9. ASPIRIN [Concomitant]

REACTIONS (8)
  - ASTHENIA [None]
  - BALANCE DISORDER [None]
  - BLOOD GLUCOSE INCREASED [None]
  - FALL [None]
  - LETHARGY [None]
  - MUSCULOSKELETAL PAIN [None]
  - PYREXIA [None]
  - WEIGHT INCREASED [None]
